FAERS Safety Report 12860393 (Version 1)
Quarter: 2016Q4

REPORT INFORMATION
  Report Type: Spontaneous
  Country: PT (occurrence: PT)
  Receive Date: 20161019
  Receipt Date: 20161019
  Transmission Date: 20170207
  Serious: Yes (Other)
  Sender: FDA-Public Use
  Company Number: PT-PFIZER INC-2016473620

PATIENT
  Age: 19 Year
  Sex: Male

DRUGS (17)
  1. METHOTREXATE SODIUM. [Suspect]
     Active Substance: METHOTREXATE SODIUM
     Dosage: 12 MG, UNK
     Route: 037
     Dates: start: 201406
  2. DAUNOXOME [Suspect]
     Active Substance: DAUNORUBICIN CITRATE
     Indication: ACUTE MYELOID LEUKAEMIA
     Dosage: 60 MG/M2, CYCLIC (DAY 2,4, 6 INFUSION 1H)
     Route: 042
     Dates: start: 201403
  3. FLUDARABINE [Suspect]
     Active Substance: FLUDARABINE PHOSPHATE
     Indication: ACUTE MYELOID LEUKAEMIA
     Dosage: 30 MG/M2, CYCLIC (DAY 1-5, INFUSION 30 MIN)
     Route: 042
     Dates: start: 201406
  4. CYTARABINE. [Suspect]
     Active Substance: CYTARABINE
     Dosage: 2000 MG/M2, CYCLIC (DAY 1-5, 4H AFTER FLUDARABINE, INFUSION 3H)
     Route: 042
     Dates: start: 201406
  5. METHOTREXATE SODIUM. [Suspect]
     Active Substance: METHOTREXATE SODIUM
     Dosage: 12 MG, UNK
     Route: 037
     Dates: start: 201404
  6. ETOPOSIDE. [Suspect]
     Active Substance: ETOPOSIDE
     Dosage: 100 MG/M2, CYCLIC (DAY 1-5 INFUSION 1H)
     Route: 042
     Dates: start: 201405
  7. CYTARABINE. [Suspect]
     Active Substance: CYTARABINE
     Indication: ACUTE MYELOID LEUKAEMIA
     Dosage: 200 MG/M2, CYCLIC (12H ON DAY 6-12)
     Route: 042
     Dates: start: 201402
  8. CYTARABINE. [Suspect]
     Active Substance: CYTARABINE
     Dosage: 1000 MG/M2, CYCLIC (DAY 1-3 EVERY 12H INFUSION 2H)
     Route: 042
     Dates: start: 201404
  9. CYTARABINE. [Suspect]
     Active Substance: CYTARABINE
     Dosage: 3000 MG/M2, CYCLIC (DAY 1-3 EVERY 12 HOURS INFUSION 2H)
     Route: 042
     Dates: start: 201405
  10. METHOTREXATE SODIUM. [Suspect]
     Active Substance: METHOTREXATE SODIUM
     Dosage: 12 MG, UNK
     Route: 037
     Dates: start: 201403
  11. ETOPOSIDE. [Suspect]
     Active Substance: ETOPOSIDE
     Dosage: 150 MG/M2, CYCLIC (DAY 6-8 INFUSION 2H)
     Route: 042
     Dates: start: 201403
  12. CYTARABINE. [Suspect]
     Active Substance: CYTARABINE
     Dosage: 100 MG/M2, CYCLIC (DAY 1-2 THEN ON DAY 3-8 AT 30 MIN INFUSION EVERY 12 HOURS)
     Route: 042
     Dates: start: 201403
  13. METHOTREXATE SODIUM. [Suspect]
     Active Substance: METHOTREXATE SODIUM
     Indication: ACUTE MYELOID LEUKAEMIA
     Dosage: 12 MG, UNK
     Route: 037
     Dates: start: 201402
  14. METHOTREXATE SODIUM. [Suspect]
     Active Substance: METHOTREXATE SODIUM
     Dosage: 12 MG, UNK
     Route: 037
     Dates: start: 201405
  15. MITOXANTRONE [Suspect]
     Active Substance: MITOXANTRONE HYDROCHLORIDE
     Indication: ACUTE MYELOID LEUKAEMIA
     Dosage: 5 MG/M2, CYCLIC (DAY 6-10 INFUSION 1 HOUR)
     Route: 042
     Dates: start: 201402
  16. MITOXANTRONE [Suspect]
     Active Substance: MITOXANTRONE HYDROCHLORIDE
     Dosage: 10 MG/M2, CYCLIC (DAY 3-5 INFUSION 1 HOUR)
     Route: 042
     Dates: start: 201404
  17. ETOPOSIDE. [Suspect]
     Active Substance: ETOPOSIDE
     Indication: ACUTE MYELOID LEUKAEMIA
     Dosage: 150 MG/M2, CYCLIC (DAY 1-5 INFUSION 2H)
     Route: 042
     Dates: start: 201402

REACTIONS (6)
  - Neoplasm recurrence [Unknown]
  - Mucosal inflammation [Unknown]
  - Sepsis [Unknown]
  - Enterocolitis [Unknown]
  - Ulcer [Unknown]
  - Febrile neutropenia [Unknown]

NARRATIVE: CASE EVENT DATE: 201402
